FAERS Safety Report 10214573 (Version 3)
Quarter: 2015Q3

REPORT INFORMATION
  Report Type: Spontaneous
  Country: US (occurrence: US)
  Receive Date: 20140603
  Receipt Date: 20150817
  Transmission Date: 20151125
  Serious: Yes (Hospitalization, Other)
  Sender: FDA-Public Use
  Company Number: US-GILEAD-2014-0103966

PATIENT
  Age: 63 Year
  Sex: Male

DRUGS (27)
  1. GABAPENTIN. [Concomitant]
     Active Substance: GABAPENTIN
  2. PLAVIX [Concomitant]
     Active Substance: CLOPIDOGREL BISULFATE
  3. LANOXIN [Concomitant]
     Active Substance: DIGOXIN
  4. CELEBREX [Concomitant]
     Active Substance: CELECOXIB
  5. VIAGRA [Concomitant]
     Active Substance: SILDENAFIL CITRATE
  6. TRICOR                             /00090101/ [Concomitant]
     Active Substance: ADENOSINE
  7. LETAIRIS [Suspect]
     Active Substance: AMBRISENTAN
     Indication: PULMONARY HYPERTENSION
  8. ASPIRIN. [Concomitant]
     Active Substance: ASPIRIN
  9. TRAZODONE [Concomitant]
     Active Substance: TRAZODONE HYDROCHLORIDE
  10. ALLOPURINOL. [Concomitant]
     Active Substance: ALLOPURINOL
  11. PREDNISONE. [Concomitant]
     Active Substance: PREDNISONE
  12. PRANDIN                            /00882701/ [Concomitant]
     Active Substance: DEFLAZACORT
  13. REMODULIN [Concomitant]
     Active Substance: TREPROSTINIL
  14. ATENOLOL. [Concomitant]
     Active Substance: ATENOLOL
  15. LETAIRIS [Suspect]
     Active Substance: AMBRISENTAN
     Indication: SYSTEMIC SCLEROSIS
  16. XIFAXAN [Concomitant]
     Active Substance: RIFAXIMIN
  17. CRESTOR [Concomitant]
     Active Substance: ROSUVASTATIN CALCIUM
  18. POTASSIUM CL [Concomitant]
     Active Substance: POTASSIUM CHLORIDE
  19. LETAIRIS [Suspect]
     Active Substance: AMBRISENTAN
     Indication: COR PULMONALE CHRONIC
     Dosage: 10 MG, QD
     Route: 065
     Dates: start: 20130612
  20. RESTORIL                           /00393701/ [Concomitant]
  21. LOSARTAN. [Concomitant]
     Active Substance: LOSARTAN
  22. ANDRODERM [Concomitant]
     Active Substance: TESTOSTERONE
  23. FLUTICASONE [Concomitant]
     Active Substance: FLUTICASONE\FLUTICASONE PROPIONATE
  24. COLCHICINE. [Concomitant]
     Active Substance: COLCHICINE
  25. TORSEMIDE. [Concomitant]
     Active Substance: TORSEMIDE
  26. NEXIUM [Concomitant]
     Active Substance: ESOMEPRAZOLE MAGNESIUM
  27. EFFEXOR [Concomitant]
     Active Substance: VENLAFAXINE HYDROCHLORIDE

REACTIONS (2)
  - Fluid overload [Recovering/Resolving]
  - Skin ulcer [Unknown]
